FAERS Safety Report 10301328 (Version 1)
Quarter: 2014Q3

REPORT INFORMATION
  Report Type: Spontaneous
  Country: US (occurrence: None)
  Receive Date: 20140709
  Receipt Date: 20140709
  Transmission Date: 20150326
  Serious: Yes (Death)
  Sender: FDA-Public Use
  Company Number: None

PATIENT
  Age: 5 Week
  Sex: Male
  Weight: 4.8 kg

DRUGS (2)
  1. GLUCAGON. [Concomitant]
     Active Substance: GLUCAGON
  2. DIAZOXIDE [Suspect]
     Active Substance: DIAZOXIDE
     Indication: HYPERSPLENISM CONGENITAL
     Route: 048
     Dates: start: 20140506, end: 20140607

REACTIONS (3)
  - Respiratory failure [None]
  - Bronchiolitis [None]
  - Respiratory distress [None]

NARRATIVE: CASE EVENT DATE: 20140607
